FAERS Safety Report 7949697-X (Version None)
Quarter: 2011Q4

REPORT INFORMATION
  Report Type: 
  Country: None (occurrence: None)
  Receive Date: 20111130
  Receipt Date: 20111116
  Transmission Date: 20120403
  Serious: Yes (Hospitalization)
  Sender: FDA-Public Use
  Company Number: US-BAYER-200942497NA

PATIENT
  Age: 31 Year
  Sex: Female
  Weight: 73 kg

DRUGS (11)
  1. QDRYL/LIDOCAINE/MAALOX [Concomitant]
     Dates: start: 20071128
  2. ONDANSETRON [Concomitant]
     Dates: start: 20070726
  3. LIDOCAINE [Concomitant]
     Dates: start: 20071128
  4. MAALOX ANTACID WITH ANTI-GAS [Concomitant]
     Dosage: UNK
     Dates: start: 20071128
  5. AZITHROMYCIN [Concomitant]
     Dosage: 6-PK
     Dates: start: 20071211
  6. PROMETHAZINE [Concomitant]
     Dates: start: 20071211
  7. YAZ [Suspect]
     Indication: PRODUCT USED FOR UNKNOWN INDICATION
     Dates: start: 20070808, end: 20090708
  8. ANESTHESIA [Concomitant]
     Indication: CHOLECYSTECTOMY
     Route: 007
     Dates: start: 20080128, end: 20080128
  9. RANITIDINE [Concomitant]
     Dates: start: 20071128
  10. PREVPAC [Concomitant]
     Dosage: COMPLIANCE PACK CARD
     Dates: start: 20071226
  11. FLUCONAZOLE [Concomitant]
     Dates: start: 20081104

REACTIONS (5)
  - GALLBLADDER DISORDER [None]
  - HEADACHE [None]
  - ABDOMINAL PAIN UPPER [None]
  - CHOLECYSTITIS CHRONIC [None]
  - DECREASED APPETITE [None]
